FAERS Safety Report 15896548 (Version 1)
Quarter: 2019Q1

REPORT INFORMATION
  Report Type: Report from Study
  Country: IE (occurrence: IE)
  Receive Date: 20190131
  Receipt Date: 20190131
  Transmission Date: 20190417
  Serious: Yes (Other)
  Sender: FDA-Public Use
  Company Number: US-ASTRAZENECA-2017SF26252

PATIENT
  Age: 71 Month
  Sex: Male

DRUGS (18)
  1. SYNAGIS [Suspect]
     Active Substance: PALIVIZUMAB
     Indication: LUNG DISORDER
     Route: 030
     Dates: start: 20121031
  2. SYNAGIS [Suspect]
     Active Substance: PALIVIZUMAB
     Indication: MUCOLIPIDOSIS TYPE II
     Route: 030
     Dates: start: 20161004, end: 20170222
  3. LOSEC [Concomitant]
     Active Substance: OMEPRAZOLE
     Indication: PRODUCT USED FOR UNKNOWN INDICATION
     Route: 050
  4. SYNAGIS [Suspect]
     Active Substance: PALIVIZUMAB
     Indication: MUCOLIPIDOSIS TYPE II
     Route: 030
     Dates: start: 20121031
  5. MOVICOL [Concomitant]
     Active Substance: POLYETHYLENE GLYCOL 3350\POTASSIUM CHLORIDE\SODIUM BICARBONATE\SODIUM CHLORIDE
     Indication: PRODUCT USED FOR UNKNOWN INDICATION
     Dosage: 1 SACHET EVERY DAY
     Route: 065
  6. SYNAGIS [Suspect]
     Active Substance: PALIVIZUMAB
     Indication: LUNG DISORDER
     Route: 030
     Dates: start: 20141023
  7. SYNAGIS [Suspect]
     Active Substance: PALIVIZUMAB
     Indication: LUNG DISORDER
     Route: 030
     Dates: start: 20171031
  8. PULMICORT TURBUHALER [Concomitant]
     Active Substance: BUDESONIDE
     Indication: PRODUCT USED FOR UNKNOWN INDICATION
     Route: 065
  9. SYNAGIS [Suspect]
     Active Substance: PALIVIZUMAB
     Indication: MUCOLIPIDOSIS TYPE II
     Route: 030
     Dates: start: 20141023
  10. SYNAGIS [Suspect]
     Active Substance: PALIVIZUMAB
     Indication: MUCOLIPIDOSIS TYPE II
     Route: 030
     Dates: start: 20131030
  11. SYNAGIS [Suspect]
     Active Substance: PALIVIZUMAB
     Indication: LUNG DISORDER
     Route: 030
     Dates: start: 20161004, end: 20170222
  12. ZITHROMAX [Concomitant]
     Active Substance: AZITHROMYCIN DIHYDRATE
     Indication: PRODUCT USED FOR UNKNOWN INDICATION
     Route: 065
  13. SALINE [Concomitant]
     Active Substance: SODIUM CHLORIDE
     Indication: PRODUCT USED FOR UNKNOWN INDICATION
     Dosage: 2 MILLILITRE, AS REQUIRED (PRN)
     Route: 050
  14. SALINE [Concomitant]
     Active Substance: SODIUM CHLORIDE
     Indication: PRODUCT USED FOR UNKNOWN INDICATION
     Route: 050
  15. ATROVENT [Concomitant]
     Active Substance: IPRATROPIUM BROMIDE
     Indication: PRODUCT USED FOR UNKNOWN INDICATION
     Dosage: 125 MICROGRAMS, AS REQUIRED (PRN)
     Route: 065
  16. SYNAGIS [Suspect]
     Active Substance: PALIVIZUMAB
     Indication: MUCOLIPIDOSIS TYPE II
     Route: 030
     Dates: start: 20171031
  17. SYNAGIS [Suspect]
     Active Substance: PALIVIZUMAB
     Indication: LUNG DISORDER
     Route: 030
     Dates: start: 20131030
  18. MICROLAX [Concomitant]
     Indication: PRODUCT USED FOR UNKNOWN INDICATION
     Dosage: 1 BAG, AS REQUIRED (PRN)
     Route: 065

REACTIONS (2)
  - Medical device site infection [Not Recovered/Not Resolved]
  - Subcutaneous abscess [Not Recovered/Not Resolved]

NARRATIVE: CASE EVENT DATE: 201711
